FAERS Safety Report 4712320-1 (Version None)
Quarter: 2005Q3

REPORT INFORMATION
  Report Type: 
  Country: None (occurrence: None)
  Receive Date: 20050711
  Receipt Date: 20050627
  Transmission Date: 20060218
  Serious: Yes (Death)
  Sender: FDA-Public Use
  Company Number: 2005BI001632

PATIENT
  Age: 70 Year
  Sex: Female

DRUGS (14)
  1. AVONEX [Suspect]
     Indication: MULTIPLE SCLEROSIS
     Dosage: 30 UG;QW; IM
     Route: 030
  2. NEURONTIN [Concomitant]
  3. SINEMET [Concomitant]
  4. NOLVADEX [Concomitant]
  5. TIMOPTIC [Concomitant]
  6. EFFEXOR [Concomitant]
  7. ACTONEL [Concomitant]
  8. K-TAB [Concomitant]
  9. PREVACID [Concomitant]
  10. LASIX [Concomitant]
  11. ZYPREXA [Concomitant]
  12. SKELAXIN [Concomitant]
  13. LORTAB [Concomitant]
  14. TOPROL-XL [Concomitant]

REACTIONS (2)
  - CARDIO-RESPIRATORY ARREST [None]
  - CORONARY ARTERY DISEASE [None]
